FAERS Safety Report 8711687 (Version 43)
Quarter: 2015Q2

REPORT INFORMATION
  Report Type: Report from Study
  Country: CA (occurrence: CA)
  Receive Date: 20120807
  Receipt Date: 20150514
  Transmission Date: 20150821
  Serious: Yes (Disabling, Other)
  Sender: FDA-Public Use
  Company Number: CA-ROCHE-1093822

PATIENT
  Age: 67 Year
  Sex: Male
  Weight: 80.5 kg

DRUGS (23)
  1. HERCEPTIN [Suspect]
     Active Substance: TRASTUZUMAB
     Route: 042
     Dates: start: 20110722
  2. HERCEPTIN [Suspect]
     Active Substance: TRASTUZUMAB
     Route: 042
     Dates: start: 20130313
  3. AVALIDE [Concomitant]
     Active Substance: HYDROCHLOROTHIAZIDE\IRBESARTAN
     Dosage: 150/12.5
     Route: 048
  4. HERCEPTIN [Suspect]
     Active Substance: TRASTUZUMAB
     Route: 042
     Dates: start: 20110622
  5. XELODA [Suspect]
     Active Substance: CAPECITABINE
     Indication: METASTATIC GASTRIC CANCER
     Route: 048
     Dates: start: 201208, end: 201210
  6. AVALIDE [Concomitant]
     Active Substance: HYDROCHLOROTHIAZIDE\IRBESARTAN
     Indication: HYPERTENSION
     Dosage: 300/25
     Route: 048
  7. HERCEPTIN [Suspect]
     Active Substance: TRASTUZUMAB
     Indication: METASTATIC GASTRIC CANCER
     Route: 042
     Dates: start: 20110119
  8. HERCEPTIN [Suspect]
     Active Substance: TRASTUZUMAB
     Route: 042
     Dates: start: 20110209
  9. SOLUCORT [Concomitant]
     Indication: PRODUCT USED FOR UNKNOWN INDICATION
     Dosage: ONCE
     Route: 042
     Dates: start: 20120725, end: 20120725
  10. HERCEPTIN [Suspect]
     Active Substance: TRASTUZUMAB
     Route: 042
     Dates: start: 20110810
  11. HERCEPTIN [Suspect]
     Active Substance: TRASTUZUMAB
     Route: 042
     Dates: start: 20140131
  12. CARVEDILOL. [Suspect]
     Active Substance: CARVEDILOL
     Indication: HYPERTENSION
     Route: 065
  13. TAXOTERE [Suspect]
     Active Substance: DOCETAXEL
     Indication: METASTATIC GASTRIC CANCER
     Route: 048
     Dates: start: 201208, end: 201210
  14. SOLUCORT [Concomitant]
     Route: 042
     Dates: start: 20110209, end: 20141126
  15. SOLU-CORTEF [Concomitant]
     Active Substance: HYDROCORTISONE SODIUM SUCCINATE
     Route: 042
     Dates: start: 20110209, end: 20141126
  16. HERCEPTIN [Suspect]
     Active Substance: TRASTUZUMAB
     Route: 042
     Dates: start: 20110601
  17. DILAUDID [Concomitant]
     Active Substance: HYDROMORPHONE HYDROCHLORIDE
     Indication: PAIN
     Route: 065
  18. SENOKOT [Concomitant]
     Active Substance: SENNOSIDES
     Indication: CONSTIPATION
  19. PANTOLOC [Concomitant]
     Active Substance: PANTOPRAZOLE SODIUM
     Route: 048
  20. PANTOLOC [Concomitant]
     Active Substance: PANTOPRAZOLE SODIUM
     Route: 048
  21. HERCEPTIN [Suspect]
     Active Substance: TRASTUZUMAB
     Route: 042
     Dates: start: 20150107
  22. DOCUSATE [Concomitant]
     Active Substance: DOCUSATE
     Indication: CONSTIPATION
  23. PANTOPRAZOLE [Concomitant]
     Active Substance: PANTOPRAZOLE SODIUM

REACTIONS (46)
  - Hepatic mass [Not Recovered/Not Resolved]
  - Mouth haemorrhage [Unknown]
  - Abscess oral [Unknown]
  - Ejection fraction decreased [Not Recovered/Not Resolved]
  - Lymphocyte count decreased [Unknown]
  - Fatigue [Unknown]
  - Haematocrit decreased [Not Recovered/Not Resolved]
  - Monocyte count increased [Unknown]
  - Monocyte count decreased [Unknown]
  - Epistaxis [Unknown]
  - Cyst [Recovered/Resolved]
  - Red blood cell count decreased [Unknown]
  - Osteoarthritis [Unknown]
  - Pulmonary mass [Not Recovered/Not Resolved]
  - Hypotension [Unknown]
  - Dyspnoea [Not Recovered/Not Resolved]
  - Blood pressure increased [Unknown]
  - Ultrasound scan abnormal [Recovered/Resolved]
  - Eosinophil count decreased [Unknown]
  - Swelling [Recovered/Resolved]
  - Haematoma [Recovered/Resolved]
  - Infusion related reaction [Unknown]
  - Fatigue [Not Recovered/Not Resolved]
  - Blood urea increased [Unknown]
  - Off label use [Unknown]
  - Blood glucose abnormal [Unknown]
  - Dyspnoea [Recovered/Resolved]
  - Red cell distribution width increased [Recovering/Resolving]
  - Monocyte count increased [Not Recovered/Not Resolved]
  - Tooth abscess [Unknown]
  - Gamma-glutamyltransferase increased [Unknown]
  - Medical device complication [Unknown]
  - Speech disorder [Unknown]
  - Haematocrit decreased [Unknown]
  - Weight increased [Not Recovered/Not Resolved]
  - Eosinophil count increased [Recovered/Resolved]
  - White blood cell count decreased [Unknown]
  - Platelet count decreased [Not Recovered/Not Resolved]
  - Blood iron decreased [Not Recovered/Not Resolved]
  - Pulmonary embolism [Unknown]
  - Blood magnesium decreased [Unknown]
  - Red blood cell count decreased [Not Recovered/Not Resolved]
  - Blood creatinine increased [Unknown]
  - Sunburn [Unknown]
  - Therapeutic response decreased [Unknown]
  - Mean cell haemoglobin concentration increased [Unknown]

NARRATIVE: CASE EVENT DATE: 2012
